FAERS Safety Report 11828018 (Version 1)
Quarter: 2015Q4

REPORT INFORMATION
  Report Type: Spontaneous
  Country: FI (occurrence: FI)
  Receive Date: 20151211
  Receipt Date: 20151211
  Transmission Date: 20160305
  Serious: Yes (Other)
  Sender: FDA-Public Use
  Company Number: FI-PFIZER INC-2015351232

PATIENT
  Age: 76 Year
  Sex: Male

DRUGS (11)
  1. ATORVASTATIN [Concomitant]
     Active Substance: ATORVASTATIN
     Dosage: UNK
     Dates: start: 2013
  2. SUTENT [Suspect]
     Active Substance: SUNITINIB MALATE
     Indication: RENAL CANCER METASTATIC
     Dosage: 37,5 MG FOR 4 WEEKS, 2 WEEKS BREAK
     Dates: start: 200710
  3. SUTENT [Suspect]
     Active Substance: SUNITINIB MALATE
     Dosage: 37,5 MG FOR THREE WEEKS, 25 MG FOR 1 WEEK
     Dates: start: 201011
  4. CLOPIDOGREL [Concomitant]
     Active Substance: CLOPIDOGREL BISULFATE
     Dosage: UNK
     Dates: start: 2013
  5. FLIXOTIDE [Concomitant]
     Active Substance: FLUTICASONE PROPIONATE
     Dosage: UNK
  6. CITALOPRAM RATIOPHARM [Concomitant]
     Dosage: UNK
     Dates: start: 2002
  7. SUTENT [Suspect]
     Active Substance: SUNITINIB MALATE
     Dosage: 25 MG FOR 4 WEEKS, BREAK FOR 3 WEEKS
     Dates: start: 201310
  8. THYROXIN [Concomitant]
     Active Substance: LEVOTHYROXINE
     Dosage: UNK
     Dates: start: 2010
  9. EMCONCOR [Concomitant]
     Active Substance: BISOPROLOL FUMARATE
     Dosage: UNK
     Dates: start: 2000
  10. AMLODIPINE VITABALANS [Concomitant]
     Dosage: UNK
     Dates: start: 2010
  11. SPIRIVA [Concomitant]
     Active Substance: TIOTROPIUM BROMIDE MONOHYDRATE
     Dosage: UNK

REACTIONS (3)
  - Parkinsonism [Not Recovered/Not Resolved]
  - Cerebral hygroma [Unknown]
  - Thyroid disorder [Unknown]

NARRATIVE: CASE EVENT DATE: 2015
